FAERS Safety Report 6231490-X (Version None)
Quarter: 2009Q2

REPORT INFORMATION
  Report Type: 
  Country: None (occurrence: None)
  Receive Date: 20090616
  Receipt Date: 20090609
  Transmission Date: 20091009
  Serious: Yes (Other)
  Sender: FDA-Public Use
  Company Number: A0789739A

PATIENT
  Age: 72 Year
  Sex: Male

DRUGS (8)
  1. ADVAIR HFA [Suspect]
     Indication: CHRONIC OBSTRUCTIVE PULMONARY DISEASE
     Dosage: 1PUFF TWICE PER DAY
     Route: 055
     Dates: start: 20040101
  2. COMBIVENT [Concomitant]
  3. PRANDIN [Concomitant]
  4. ASPIRIN [Concomitant]
  5. ACIPHEX [Concomitant]
  6. ALTACE [Concomitant]
  7. PLAVIX [Concomitant]
  8. ATENOLOL [Concomitant]

REACTIONS (2)
  - CATARACT [None]
  - MYODESOPSIA [None]
